FAERS Safety Report 12994845 (Version 1)
Quarter: 2016Q4

REPORT INFORMATION
  Report Type: Spontaneous
  Country: IT (occurrence: IT)
  Receive Date: 20161202
  Receipt Date: 20161202
  Transmission Date: 20170207
  Serious: Yes (Other)
  Sender: FDA-Public Use
  Company Number: IT-TEVA-716081ACC

PATIENT
  Age: 39 Year
  Sex: Female

DRUGS (4)
  1. GRANISETRON B. BRAUN - 1 MG/ML [Concomitant]
     Indication: PROPHYLAXIS OF NAUSEA AND VOMITING
     Dosage: 3 MG
     Route: 042
     Dates: start: 20161114, end: 20161114
  2. TRIMETON - 10 MG/1 ML SOLUZIONE INIETTABILE [Concomitant]
     Indication: ALLERGY PROPHYLAXIS
     Dosage: 10 MG
     Route: 042
     Dates: start: 20161114, end: 20161114
  3. PACLITAXEL. [Suspect]
     Active Substance: PACLITAXEL
     Indication: BREAST CANCER
     Dosage: 140 MG CYCLICAL
     Route: 042
     Dates: start: 20161114, end: 20161114
  4. DESAMETASONE FOSFATO HOSPIRA - 4MG/ML SOLUZIONE INIETTABILE [Concomitant]
     Active Substance: DEXAMETHASONE SODIUM PHOSPHATE
     Indication: ALLERGY PROPHYLAXIS
     Dosage: 12 MG
     Route: 042
     Dates: start: 20161114, end: 20161114

REACTIONS (4)
  - Lip oedema [Recovered/Resolved]
  - Dysphagia [Recovered/Resolved]
  - Feeling hot [Recovered/Resolved]
  - Flushing [Recovered/Resolved]

NARRATIVE: CASE EVENT DATE: 20161114
